FAERS Safety Report 9513582 (Version 2)
Quarter: 2013Q4

REPORT INFORMATION
  Report Type: Spontaneous
  Country: US (occurrence: US)
  Receive Date: 20130910
  Receipt Date: 20131016
  Transmission Date: 20140711
  Serious: Yes (Other)
  Sender: FDA-Public Use
  Company Number: US-GLAXOSMITHKLINE-A1036921A

PATIENT
  Age: 68 Year
  Sex: Male

DRUGS (2)
  1. VOTRIENT [Suspect]
     Indication: RENAL CANCER
     Dosage: 400MG TWICE PER DAY
     Route: 065
  2. BLOOD PRESSURE MEDICATION [Concomitant]

REACTIONS (8)
  - Diabetes mellitus [Unknown]
  - Joint swelling [Unknown]
  - Insomnia [Not Recovered/Not Resolved]
  - Fatigue [Not Recovered/Not Resolved]
  - Nausea [Not Recovered/Not Resolved]
  - Diarrhoea [Not Recovered/Not Resolved]
  - Asthenia [Recovering/Resolving]
  - Hypertension [Not Recovered/Not Resolved]
